FAERS Safety Report 11557489 (Version 2)
Quarter: 2015Q4

REPORT INFORMATION
  Report Type: Spontaneous
  Country: FR (occurrence: FR)
  Receive Date: 20150926
  Receipt Date: 20151103
  Transmission Date: 20160304
  Serious: Yes (Hospitalization)
  Sender: FDA-Public Use
  Company Number: FR-ABBVIE-15K-056-1467033-00

PATIENT
  Sex: Female

DRUGS (1)
  1. HUMIRA [Suspect]
     Active Substance: ADALIMUMAB
     Indication: CROHN^S DISEASE
     Route: 065
     Dates: start: 2008, end: 2013

REACTIONS (6)
  - Paradoxical drug reaction [Unknown]
  - Anal fistula [Unknown]
  - Hidradenitis [Unknown]
  - Crohn^s disease [Unknown]
  - Vaginal oedema [Unknown]
  - Purulent discharge [Unknown]

NARRATIVE: CASE EVENT DATE: 2009
